FAERS Safety Report 19777092 (Version 1)
Quarter: 2021Q3

REPORT INFORMATION
  Report Type: Report from Study
  Country: US (occurrence: US)
  Receive Date: 20210902
  Receipt Date: 20210902
  Transmission Date: 20211014
  Serious: Yes (Other)
  Sender: FDA-Public Use
  Company Number: US-NOVOPROD-842310

PATIENT
  Age: 50 Year
  Sex: Female
  Weight: 76.74 kg

DRUGS (1)
  1. SAXENDA [Suspect]
     Active Substance: LIRAGLUTIDE
     Indication: OBESITY
     Dosage: UNK
     Route: 058

REACTIONS (2)
  - Drug-induced liver injury [Not Recovered/Not Resolved]
  - Blister [Not Recovered/Not Resolved]

NARRATIVE: CASE EVENT DATE: 202108
